FAERS Safety Report 4953021-4 (Version None)
Quarter: 2006Q1

REPORT INFORMATION
  Report Type: 
  Country: None (occurrence: None)
  Receive Date: 20060324
  Receipt Date: 20060306
  Transmission Date: 20060701
  Serious: Yes (Hospitalization)
  Sender: FDA-Public Use
  Company Number: NL-GLAXOSMITHKLINE-B0415749A

PATIENT
  Age: 31 Year
  Sex: Male
  Weight: 75 kg

DRUGS (5)
  1. FLOXACILLIN SODIUM [Suspect]
     Indication: OSTEOMYELITIS
     Dosage: 1500MG PER DAY
  2. AMOXICILLIN + CLAVULANATE POTASSIUM [Suspect]
     Indication: OSTEOMYELITIS
  3. SEROQUEL [Suspect]
     Indication: BIPOLAR DISORDER
     Dosage: 900MG PER DAY
     Dates: start: 20051101
  4. DALACIN C [Suspect]
     Dosage: 900MG PER DAY
  5. DIAZEPAM [Concomitant]
     Dosage: 5MG PER DAY
     Dates: start: 20051101

REACTIONS (3)
  - DRUG INTERACTION [None]
  - DRUG LEVEL INCREASED [None]
  - PSYCHOTIC DISORDER [None]
